FAERS Safety Report 5871555-5 (Version None)
Quarter: 2008Q3

REPORT INFORMATION
  Report Type: 
  Country: None (occurrence: None)
  Receive Date: 20080905
  Receipt Date: 20080422
  Transmission Date: 20090109
  Serious: No
  Sender: FDA-Public Use
  Company Number: A0724092A

PATIENT
  Age: 76 Year
  Sex: Male

DRUGS (2)
  1. REQUIP [Suspect]
     Indication: RESTLESS LEGS SYNDROME
     Dosage: .5MG AT NIGHT
     Route: 048
  2. PRILOSEC [Concomitant]

REACTIONS (3)
  - BACK PAIN [None]
  - SENSATION OF FOREIGN BODY [None]
  - SENSORY DISTURBANCE [None]
